FAERS Safety Report 10090571 (Version 1)
Quarter: 2014Q2

REPORT INFORMATION
  Report Type: Spontaneous
  Country: IT (occurrence: IT)
  Receive Date: 20140421
  Receipt Date: 20140421
  Transmission Date: 20141212
  Serious: Yes (Disabling)
  Sender: FDA-Public Use
  Company Number: IT-BAYER-2014-057552

PATIENT
  Age: 68 Year
  Sex: Male

DRUGS (3)
  1. CARDIOASPIRIN [Suspect]
     Indication: CORONARY ARTERY DISEASE
     Dosage: DAILY DOSE 100 MG
     Route: 048
     Dates: start: 20130501
  2. PLAVIX [Suspect]
     Dosage: DAILY DOSE 75 MG
     Route: 048
     Dates: start: 20130501, end: 20140401
  3. COUMADIN [Suspect]
     Indication: ATRIAL FIBRILLATION
     Dosage: 1 DF, PRN
     Route: 048
     Dates: start: 20130301, end: 20140401

REACTIONS (1)
  - Ischaemic stroke [Recovered/Resolved with Sequelae]
